FAERS Safety Report 16399690 (Version 2)
Quarter: 2020Q2

REPORT INFORMATION
  Report Type: Spontaneous
  Country: US (occurrence: US)
  Receive Date: 20190606
  Receipt Date: 20200406
  Transmission Date: 20200713
  Serious: No
  Sender: FDA-Public Use
  Company Number: US-SA-2019SA149749

PATIENT
  Age: 53 Year
  Sex: Female
  Weight: 63.05 kg

DRUGS (1)
  1. ALLEGRA [Suspect]
     Active Substance: FEXOFENADINE HYDROCHLORIDE
     Indication: HYPERSENSITIVITY
     Dosage: UNK UNK, UNK
     Route: 065

REACTIONS (4)
  - Drug ineffective [Unknown]
  - Cough [Unknown]
  - Rash [Unknown]
  - Product dose omission [Unknown]
